FAERS Safety Report 21387084 (Version 1)
Quarter: 2022Q3

REPORT INFORMATION
  Report Type: Spontaneous
  Country: US (occurrence: US)
  Receive Date: 20220928
  Receipt Date: 20220928
  Transmission Date: 20221026
  Serious: Yes (Other)
  Sender: FDA-Public Use
  Company Number: US-PFIZER INC-202201185669

PATIENT
  Age: 63 Year
  Sex: Female

DRUGS (4)
  1. PAXLOVID [Suspect]
     Active Substance: NIRMATRELVIR\RITONAVIR
     Indication: COVID-19 treatment
     Dosage: UNK
     Dates: start: 20220819, end: 20220823
  2. INSULIN NOS [Concomitant]
     Active Substance: INSULIN NOS
     Dosage: UNK UNK, 3X/DAY
  3. HUMALOG [Concomitant]
     Active Substance: INSULIN LISPRO
     Dosage: MIXED TOGETHER, INJECTED 3 TIMES A DAY
  4. HUMULINE [Concomitant]
     Dosage: MIXED TOGETHER, INJECTED 3 TIMES A DAY

REACTIONS (4)
  - Nasal operation [Unknown]
  - Neoplasm progression [Unknown]
  - Wound [Unknown]
  - Therapeutic product effect incomplete [Unknown]
